FAERS Safety Report 15254102 (Version 9)
Quarter: 2020Q2

REPORT INFORMATION
  Report Type: Report from Study
  Country: CO (occurrence: CO)
  Receive Date: 20180808
  Receipt Date: 20200403
  Transmission Date: 20200713
  Serious: Yes (Hospitalization, Other)
  Sender: FDA-Public Use
  Company Number: CO-ASTELLAS-2018US035170

PATIENT
  Age: 57 Year
  Sex: Male

DRUGS (4)
  1. TACROLIMUS. [Suspect]
     Active Substance: TACROLIMUS
     Route: 048
  2. TACROLIMUS. [Suspect]
     Active Substance: TACROLIMUS
     Indication: RENAL TRANSPLANT
     Dosage: 6 MG, ONCE DAILY (2 CAPSULES OF 3 MG)
     Route: 048
     Dates: start: 20160312, end: 201809
  3. TACROLIMUS. [Suspect]
     Active Substance: TACROLIMUS
     Dosage: 2 MG, ONCE DAILY (2 CAPSULES OF 1MG)
     Route: 048
  4. TACROLIMUS. [Suspect]
     Active Substance: TACROLIMUS
     Dosage: 2 MG, ONCE DAILY (1 CAPSULE OF 2 MG)
     Route: 048
     Dates: start: 201809

REACTIONS (11)
  - Prostatitis [Recovering/Resolving]
  - Kidney infection [Recovered/Resolved]
  - Product availability issue [Unknown]
  - Urinary tract infection [Recovering/Resolving]
  - Therapy interrupted [Unknown]
  - Urinary tract infection [Recovering/Resolving]
  - Urinary tract infection [Recovered/Resolved]
  - Discomfort [Recovered/Resolved]
  - Blood creatinine increased [Not Recovered/Not Resolved]
  - Inappropriate schedule of product administration [Unknown]
  - Diabetic neuropathy [Not Recovered/Not Resolved]

NARRATIVE: CASE EVENT DATE: 20180630
